FAERS Safety Report 5105670-0 (Version None)
Quarter: 2006Q3

REPORT INFORMATION
  Report Type: 
  Country: None (occurrence: None)
  Receive Date: 20060915
  Receipt Date: 20060905
  Transmission Date: 20061208
  Serious: Yes (Other)
  Sender: FDA-Public Use
  Company Number: AT-BRISTOL-MYERS SQUIBB COMPANY-13498860

PATIENT
  Age: 49 Year
  Sex: Female
  Weight: 107 kg

DRUGS (5)
  1. ABILIFY [Suspect]
     Indication: SCHIZOAFFECTIVE DISORDER
     Route: 048
     Dates: start: 20060620, end: 20060627
  2. AMISULPRIDE [Concomitant]
  3. ESCITALOPRAM OXALATE [Concomitant]
  4. TRITTICO [Concomitant]
  5. LAMOTRIGINE [Concomitant]

REACTIONS (4)
  - HAEMATOMA [None]
  - HAEMORRHAGE [None]
  - NAUSEA [None]
  - VERTIGO [None]
